FAERS Safety Report 5629312-0 (Version None)
Quarter: 2008Q1

REPORT INFORMATION
  Report Type: 
  Country: None (occurrence: None)
  Receive Date: 20080215
  Receipt Date: 20080215
  Transmission Date: 20080703
  Serious: Yes (Other)
  Sender: FDA-Public Use
  Company Number: None

PATIENT
  Sex: Female
  Weight: 56.6996 kg

DRUGS (1)
  1. GENERIC BETAPACE 80 MG [Suspect]
     Indication: ATRIAL FIBRILLATION
     Dosage: 80 MG - 1/2 TAB BID PO
     Route: 048
     Dates: start: 20030901, end: 20031201

REACTIONS (3)
  - DRUG EFFECT DECREASED [None]
  - PALPITATIONS [None]
  - PHARMACEUTICAL PRODUCT COMPLAINT [None]
